FAERS Safety Report 5770893-4 (Version None)
Quarter: 2008Q2

REPORT INFORMATION
  Report Type: 
  Country: None (occurrence: None)
  Receive Date: 20080613
  Receipt Date: 20080516
  Transmission Date: 20081010
  Serious: No
  Sender: FDA-Public Use
  Company Number: US-ABBOTT-08P-163-0452509-00

PATIENT
  Sex: Female
  Weight: 79.904 kg

DRUGS (9)
  1. HUMIRA [Suspect]
     Indication: PSORIATIC ARTHROPATHY
     Route: 058
     Dates: start: 20051201
  2. HUMIRA [Suspect]
     Indication: PSORIASIS
  3. METHOTREXATE [Concomitant]
     Indication: PSORIASIS
     Route: 048
  4. METHOTREXATE [Concomitant]
     Indication: PSORIATIC ARTHROPATHY
  5. FOLIC ACID [Concomitant]
     Indication: VITAMIN SUPPLEMENTATION
     Route: 048
  6. HYDROXYCHLOROQUINE SULFATE [Concomitant]
     Indication: PAIN
     Route: 048
     Dates: end: 20070101
  7. VERAPAMIL [Concomitant]
     Indication: HYPERTENSION
     Route: 048
     Dates: start: 20050101
  8. ATENOLOL [Concomitant]
     Indication: HYPERTENSION
     Route: 048
     Dates: start: 20050101
  9. TRIMADOL [Concomitant]
     Indication: PAIN
     Dosage: 50MG TO 100MG DAILY
     Route: 048

REACTIONS (4)
  - DRUG DOSE OMISSION [None]
  - PAIN [None]
  - SKIN LESION [None]
  - STRESS [None]
